FAERS Safety Report 23073269 (Version 1)
Quarter: 2023Q4

REPORT INFORMATION
  Report Type: Spontaneous
  Country: US (occurrence: US)
  Receive Date: 20231017
  Receipt Date: 20231017
  Transmission Date: 20240110
  Serious: Yes (Other)
  Sender: FDA-Public Use
  Company Number: US-drreddys-SPO/USA/23/0179559

PATIENT
  Age: 22 Year

DRUGS (2)
  1. ZENATANE [Suspect]
     Active Substance: ISOTRETINOIN
     Indication: Product used for unknown indication
     Dosage: RMA ISSUE DATES: 22 APRIL 2021 08:58:35 AM
  2. ZENATANE [Suspect]
     Active Substance: ISOTRETINOIN
     Dosage: RMA ISSUE DATES: 30 MAY 2023 09:08:20 AM, 14 JUNE 2023 02:55:01 PM, 18 JULY 2023 04:16:33 PM, 25 JUL

REACTIONS (1)
  - Depression [Unknown]
